FAERS Safety Report 19226942 (Version 2)
Quarter: 2021Q2

REPORT INFORMATION
  Report Type: Spontaneous
  Country: BE (occurrence: BE)
  Receive Date: 20210506
  Receipt Date: 20210621
  Transmission Date: 20210717
  Serious: Yes (Hospitalization, Other)
  Sender: FDA-Public Use
  Company Number: BE-CELLTRION INC.-2021BE006114

PATIENT

DRUGS (4)
  1. REMSIMA [Suspect]
     Active Substance: INFLIXIMAB
     Dosage: UNK
  2. REMSIMA [Suspect]
     Active Substance: INFLIXIMAB
     Indication: PRODUCT USED FOR UNKNOWN INDICATION
     Dosage: UNK
     Dates: start: 202101
  3. REMSIMA [Suspect]
     Active Substance: INFLIXIMAB
     Dosage: UNK
  4. REMSIMA [Suspect]
     Active Substance: INFLIXIMAB
     Dosage: UNK

REACTIONS (5)
  - Antineutrophil cytoplasmic antibody positive [Unknown]
  - Alanine aminotransferase increased [Unknown]
  - Gamma-glutamyltransferase abnormal [Unknown]
  - Autoimmune hepatitis [Unknown]
  - Antinuclear antibody increased [Unknown]
